FAERS Safety Report 6375723-8 (Version None)
Quarter: 2009Q3

REPORT INFORMATION
  Report Type: 
  Country: None (occurrence: None)
  Receive Date: 20090924
  Receipt Date: 20090910
  Transmission Date: 20100115
  Serious: Yes (Death)
  Sender: FDA-Public Use
  Company Number: DE-MYLANLABS-2009S1015938

PATIENT
  Age: 53 Year
  Sex: Male

DRUGS (1)
  1. DOXEPIN HCL [Suspect]
     Indication: DRUG USE FOR UNKNOWN INDICATION
     Dosage: DOSAGE NOT STATED
     Route: 048

REACTIONS (2)
  - ANTIDEPRESSANT DRUG LEVEL INCREASED [None]
  - DRUG TOXICITY [None]
